FAERS Safety Report 4786239-4 (Version None)
Quarter: 2005Q4

REPORT INFORMATION
  Report Type: 
  Country: None (occurrence: None)
  Receive Date: 20051003
  Receipt Date: 20050919
  Transmission Date: 20060501
  Serious: Yes (Other)
  Sender: FDA-Public Use
  Company Number: SEWYE995221SEP05

PATIENT
  Age: 14 Year
  Sex: Female

DRUGS (4)
  1. ENBREL [Suspect]
     Indication: SARCOIDOSIS
     Route: 058
     Dates: start: 20050207, end: 20050307
  2. PREDNISOLONE [Concomitant]
     Indication: SARCOIDOSIS
     Dates: end: 20050308
  3. SOMATROPIN [Concomitant]
  4. UNSPECIFIED MEDICATION [Concomitant]
     Route: 047

REACTIONS (5)
  - EYE INFLAMMATION [None]
  - IRIDOCYCLITIS [None]
  - MACULAR OEDEMA [None]
  - SLEEP DISORDER [None]
  - VISUAL ACUITY REDUCED [None]
